FAERS Safety Report 5334544-5 (Version None)
Quarter: 2007Q2

REPORT INFORMATION
  Report Type: 
  Country: None (occurrence: None)
  Receive Date: 20070522
  Receipt Date: 20070510
  Transmission Date: 20071010
  Serious: Yes (Hospitalization)
  Sender: FDA-Public Use
  Company Number: MEDI-0004959

PATIENT
  Age: 5 Month

DRUGS (1)
  1. SYNAGIS [Suspect]
     Indication: ANTIVIRAL PROPHYLAXIS
     Dosage: 33 MG, INTRAMUSCULAR
     Route: 030
     Dates: start: 20060208, end: 20060208

REACTIONS (2)
  - HYPERTHERMIA [None]
  - VIRAL INFECTION [None]
